FAERS Safety Report 23919146 (Version 1)
Quarter: 2024Q2

REPORT INFORMATION
  Report Type: Spontaneous
  Country: US (occurrence: US)
  Receive Date: 20240530
  Receipt Date: 20240530
  Transmission Date: 20240716
  Serious: Yes (Life-Threatening, Hospitalization, Other)
  Sender: FDA-Public Use
  Company Number: US-MLMSERVICE-20240513-PI061134-00080-1

PATIENT
  Age: 53 Year
  Sex: Female

DRUGS (3)
  1. CARBIDOPA\LEVODOPA [Suspect]
     Active Substance: CARBIDOPA\LEVODOPA
     Indication: Product used for unknown indication
  2. AMANTADINE [Suspect]
     Active Substance: AMANTADINE
     Indication: Product used for unknown indication
  3. SELEGILINE [Suspect]
     Active Substance: SELEGILINE
     Indication: Product used for unknown indication

REACTIONS (6)
  - Acute kidney injury [Unknown]
  - Hyperkalaemia [Unknown]
  - Acidosis [Unknown]
  - Hypocalcaemia [Unknown]
  - Multiple organ dysfunction syndrome [Unknown]
  - Dyskinesia hyperpyrexia syndrome [Recovering/Resolving]
